FAERS Safety Report 12599677 (Version 1)
Quarter: 2016Q3

REPORT INFORMATION
  Report Type: Spontaneous
  Country: US (occurrence: US)
  Receive Date: 20160727
  Receipt Date: 20160727
  Transmission Date: 20161109
  Serious: Yes (Other)
  Sender: FDA-Public Use
  Company Number: US-SA-2015SA109936

PATIENT
  Sex: Male

DRUGS (1)
  1. AMBIEN [Suspect]
     Active Substance: ZOLPIDEM TARTRATE
     Dosage: START DATE: FOR ABOUT A YEAR NOW
     Route: 048

REACTIONS (3)
  - Incorrect drug administration duration [Unknown]
  - Suicidal ideation [Unknown]
  - Memory impairment [Unknown]
